FAERS Safety Report 9226767 (Version 1)
Quarter: 2013Q2

REPORT INFORMATION
  Report Type: Spontaneous
  Country: US (occurrence: US)
  Receive Date: 20130412
  Receipt Date: 20130412
  Transmission Date: 20140414
  Serious: No
  Sender: FDA-Public Use
  Company Number: US-009507513-1304USA004831

PATIENT
  Sex: Male

DRUGS (2)
  1. REMERON [Suspect]
     Indication: AUTONOMIC NERVOUS SYSTEM IMBALANCE
     Dosage: 15 MG, QD
     Route: 048
     Dates: start: 201209
  2. REMERON [Suspect]
     Indication: ANXIETY
     Dosage: HALF DOSE OF TABLET, QD
     Route: 048
     Dates: start: 20130318, end: 20130325

REACTIONS (5)
  - Anxiety [Not Recovered/Not Resolved]
  - Depressed mood [Not Recovered/Not Resolved]
  - Stress [Not Recovered/Not Resolved]
  - Weight increased [Unknown]
  - Off label use [Unknown]
